FAERS Safety Report 5039092-8 (Version None)
Quarter: 2006Q2

REPORT INFORMATION
  Report Type: 
  Country: None (occurrence: None)
  Receive Date: 20060601
  Receipt Date: 20060119
  Transmission Date: 20061013
  Serious: No
  Sender: FDA-Public Use
  Company Number: 2005PV005881

PATIENT
  Age: 51 Year
  Sex: Female
  Weight: 96.1626 kg

DRUGS (16)
  1. BYETTA [Suspect]
     Indication: DIABETES MELLITUS NON-INSULIN-DEPENDENT
     Dosage: SEE IMAGE
     Route: 058
     Dates: start: 20051116, end: 20051211
  2. BYETTA [Suspect]
     Indication: DIABETES MELLITUS NON-INSULIN-DEPENDENT
     Dosage: SEE IMAGE
     Route: 058
     Dates: start: 20051212, end: 20060118
  3. BYETTA [Suspect]
     Indication: DIABETES MELLITUS NON-INSULIN-DEPENDENT
     Dosage: SEE IMAGE
     Route: 058
     Dates: start: 20060119
  4. NUPRIN [Suspect]
     Indication: INFLUENZA LIKE ILLNESS
     Dosage: 30 MG
     Dates: start: 20051208
  5. ANACIN [Suspect]
     Indication: INFLUENZA LIKE ILLNESS
     Dates: start: 20051205
  6. BENADRYL [Suspect]
     Indication: PRURITUS
     Dates: start: 20051205
  7. COUGH MEDICINE [Suspect]
     Indication: INFLUENZA LIKE ILLNESS
     Dates: start: 20051205
  8. METFORMIN [Concomitant]
  9. GLUCOTROL [Concomitant]
  10. WELLBUTRIN [Concomitant]
  11. ZOLOFT [Concomitant]
  12. PROTONIX [Concomitant]
  13. LIPITOR [Concomitant]
  14. ZETIA [Concomitant]
  15. LISINOPRIL [Concomitant]
  16. GLIPIZIDE [Concomitant]

REACTIONS (11)
  - BLOOD GLUCOSE INCREASED [None]
  - COUGH [None]
  - DRUG EFFECT DECREASED [None]
  - HEADACHE [None]
  - INFLUENZA LIKE ILLNESS [None]
  - INJECTION SITE BRUISING [None]
  - INJECTION SITE PAIN [None]
  - INJECTION SITE URTICARIA [None]
  - NERVOUSNESS [None]
  - OVERDOSE [None]
  - PAIN [None]
